FAERS Safety Report 5205690-1 (Version None)
Quarter: 2007Q1

REPORT INFORMATION
  Report Type: 
  Country: None (occurrence: None)
  Receive Date: 20070111
  Receipt Date: 20070103
  Transmission Date: 20070707
  Serious: Yes (Hospitalization)
  Sender: FDA-Public Use
  Company Number: PHBS2007GB00484

PATIENT
  Age: 39 Year
  Sex: Female

DRUGS (5)
  1. SYNTOCINON [Suspect]
     Route: 042
  2. MIFEPRISTONE [Suspect]
     Dosage: 200 MG, UNK
  3. MISOPROSTOL [Suspect]
     Dosage: 800 UG/DAY
     Route: 067
  4. MISOPROSTOL [Suspect]
     Dosage: 400 UG/DAY
     Route: 048
  5. GEMEPROST [Suspect]
     Dosage: 1 MG/DAY

REACTIONS (3)
  - ABDOMINAL PAIN [None]
  - LAPAROTOMY [None]
  - UTERINE RUPTURE [None]
